FAERS Safety Report 10400404 (Version 1)
Quarter: 2014Q3

REPORT INFORMATION
  Report Type: Spontaneous
  Country: US (occurrence: US)
  Receive Date: 20140821
  Receipt Date: 20140821
  Transmission Date: 20150326
  Serious: No
  Sender: FDA-Public Use
  Company Number: US-ASTRAZENECA-2013SE90075

PATIENT
  Sex: Female

DRUGS (2)
  1. PREDNISONE. [Concomitant]
     Active Substance: PREDNISONE
  2. SYMBICORT [Suspect]
     Active Substance: BUDESONIDE\FORMOTEROL FUMARATE DIHYDRATE
     Indication: OBLITERATIVE BRONCHIOLITIS
     Dosage: UNKNOWN DOSE AND FREQUENCY
     Route: 055

REACTIONS (15)
  - Heart rate irregular [Recovered/Resolved]
  - Body temperature decreased [Recovered/Resolved]
  - Carotid pulse abnormal [Unknown]
  - Tachycardia [Unknown]
  - Nasopharyngitis [Unknown]
  - Agitation [Unknown]
  - Polyglandular disorder [Unknown]
  - Chills [Unknown]
  - Endocrine disorder [Unknown]
  - Cough [Unknown]
  - Headache [Unknown]
  - Palpitations [Unknown]
  - Halo vision [Unknown]
  - Device misuse [Unknown]
  - Off label use [Unknown]
